FAERS Safety Report 25002659 (Version 1)
Quarter: 2025Q1

REPORT INFORMATION
  Report Type: Spontaneous
  Country: US (occurrence: US)
  Receive Date: 20250224
  Receipt Date: 20250224
  Transmission Date: 20250408
  Serious: No
  Sender: ELI LILLY AND COMPANY
  Company Number: US-ELI_LILLY_AND_COMPANY-US202502016548

PATIENT
  Sex: Female

DRUGS (1)
  1. TRULICITY [Suspect]
     Active Substance: DULAGLUTIDE
     Indication: Type 2 diabetes mellitus
     Route: 065

REACTIONS (8)
  - Headache [Unknown]
  - Anxiety [Unknown]
  - Sleep disorder due to general medical condition, insomnia type [Unknown]
  - Blood glucose abnormal [Unknown]
  - Injection site reaction [Unknown]
  - Nausea [Unknown]
  - Constipation [Unknown]
  - Abdominal distension [Unknown]
